FAERS Safety Report 20541635 (Version 2)
Quarter: 2022Q1

REPORT INFORMATION
  Report Type: Report from Study
  Country: MX (occurrence: MX)
  Receive Date: 20220302
  Receipt Date: 20220308
  Transmission Date: 20220424
  Serious: Yes (Death, Hospitalization)
  Sender: FDA-Public Use
  Company Number: MX-TAKEDA-MX202027639

PATIENT
  Age: 2 Year
  Sex: Male
  Weight: 10 kg

DRUGS (4)
  1. IDURSULFASE [Suspect]
     Active Substance: IDURSULFASE
     Indication: Mucopolysaccharidosis II
     Dosage: 1 DOSAGE FORM, 1/WEEK
     Route: 042
     Dates: end: 20220303
  2. FLUTICASONE [Concomitant]
     Active Substance: FLUTICASONE
     Indication: Nasal disorder
     Dosage: UNK
     Route: 065
  3. VITAMIN 15 [Concomitant]
  4. ALBUTEROL [Concomitant]
     Active Substance: ALBUTEROL
     Dosage: UNK

REACTIONS (6)
  - COVID-19 [Fatal]
  - Stress [Recovered/Resolved]
  - Skin discolouration [Recovered/Resolved]
  - Poor venous access [Recovered/Resolved]
  - Therapy interrupted [Recovering/Resolving]
  - Product availability issue [Recovering/Resolving]

NARRATIVE: CASE EVENT DATE: 20200819
